FAERS Safety Report 15204219 (Version 3)
Quarter: 2024Q2

REPORT INFORMATION
  Report Type: Report from Study
  Country: FR (occurrence: FR)
  Receive Date: 20180726
  Receipt Date: 20240419
  Transmission Date: 20240716
  Serious: Yes (Other)
  Sender: FDA-Public Use
  Company Number: None

PATIENT
  Age: 13 Year
  Sex: Male

DRUGS (29)
  1. PREDNISONE [Suspect]
     Active Substance: PREDNISONE
     Indication: Acute lymphocytic leukaemia
     Dosage: 100 MG, UNK (DOSAGE FORM: UNKNOWN)
     Route: 048
     Dates: start: 20161129, end: 20161228
  2. METHOTREXATE [Suspect]
     Active Substance: METHOTREXATE
     Indication: Acute lymphocytic leukaemia
     Dosage: 15 MILLIGRAM (DOSAGE FORM: UNKNOWN)
     Route: 037
     Dates: start: 20161129
  3. METHOTREXATE [Suspect]
     Active Substance: METHOTREXATE
     Dosage: 15 MILLIGRAM (DOSAGE FORM: UNKNOWN)
     Route: 037
     Dates: start: 20170602, end: 20170602
  4. METHOTREXATE [Suspect]
     Active Substance: METHOTREXATE
     Indication: Acute lymphocytic leukaemia
     Dosage: 8000 MILLIGRAM, QD
     Route: 042
     Dates: start: 20170417
  5. CYTARABINE [Suspect]
     Active Substance: CYTARABINE
     Indication: Acute lymphocytic leukaemia
     Dosage: 110 MILLIGRAM (DOSAGE FORM: UNKNOWN)
     Route: 042
     Dates: start: 20161202
  6. CYTARABINE [Suspect]
     Active Substance: CYTARABINE
     Dosage: 110 MILLIGRAM, QD
     Route: 042
     Dates: start: 20170629, end: 20170713
  7. CYTARABINE [Suspect]
     Active Substance: CYTARABINE
     Dosage: 120 MILLIGRAM, TOTAL DOSE: 1680
     Route: 042
  8. CYTARABINE [Suspect]
     Active Substance: CYTARABINE
     Dosage: 110 MILLIGRAM
     Route: 042
     Dates: start: 20170115
  9. CYCLOPHOSPHAMIDE [Suspect]
     Active Substance: CYCLOPHOSPHAMIDE
     Indication: Acute lymphocytic leukaemia
     Dosage: 1640 MILLIGRAM (DOSAGE FORM: UNKNOWN)
     Route: 042
     Dates: start: 20170621, end: 20170627
  10. CYCLOPHOSPHAMIDE [Suspect]
     Active Substance: CYCLOPHOSPHAMIDE
     Dosage: 1500 MILLIGRAM (DOSAGE FORM: UNKNOWN)
     Route: 042
     Dates: start: 20170113, end: 20170209
  11. DEXAMETHASONE [Suspect]
     Active Substance: DEXAMETHASONE
     Indication: Acute lymphocytic leukaemia
     Dosage: 16.5 MILLIGRAM (DOSAGE FORM: UNKNOWN)
     Route: 048
     Dates: start: 20170530, end: 20170613
  12. DEXAMETHASONE [Suspect]
     Active Substance: DEXAMETHASONE
     Dosage: 96 MILLIGRAM (DOSAGE FORM: UNKNOWN)
     Route: 048
     Dates: start: 20170317, end: 20170322
  13. VINCRISTINE SULFATE [Suspect]
     Active Substance: VINCRISTINE SULFATE
     Indication: Acute lymphocytic leukaemia
     Dosage: 2 MILLIGRAM (DOSAGE FORM: UNKNOWN)
     Route: 042
     Dates: start: 20161130, end: 20170722
  14. DAUNORUBICIN [Suspect]
     Active Substance: DAUNORUBICIN
     Indication: Acute lymphocytic leukaemia
     Dosage: 65 MILLIGRAM (DOSAGE FORM: UNKNOWN)
     Route: 042
     Dates: start: 20161130, end: 20161222
  15. DAUNORUBICIN [Suspect]
     Active Substance: DAUNORUBICIN
     Dosage: 65 MILLIGRAM, QD
     Route: 042
     Dates: start: 20170530
  16. ADRIAMYCIN [Suspect]
     Active Substance: DOXORUBICIN HYDROCHLORIDE
     Indication: Acute lymphocytic leukaemia
     Dosage: 42 MILLIGRAM
     Route: 042
     Dates: start: 20170530
  17. PEGASPARGASE [Suspect]
     Active Substance: PEGASPARGASE
     Indication: Acute lymphocytic leukaemia
     Dosage: 4200 INTERNATIONAL UNIT
     Route: 042
     Dates: start: 20161205
  18. PEGASPARGASE [Suspect]
     Active Substance: PEGASPARGASE
     Dosage: 4200 INTERNATIONAL UNIT
     Route: 042
     Dates: start: 20170602, end: 20170602
  19. MERCAPTOPURINE [Suspect]
     Active Substance: MERCAPTOPURINE
     Indication: Acute lymphocytic leukaemia
     Dosage: 40 MILLIGRAM, QD
     Route: 065
     Dates: start: 20170113
  20. HYDROCORTISONE [Suspect]
     Active Substance: HYDROCORTISONE
     Indication: Acute lymphocytic leukaemia
     Dosage: 15 MILLIGRAM (DOSAGE FORM: UNSPECIFIED)
     Route: 037
     Dates: start: 20161202
  21. DOXORUBICIN [Suspect]
     Active Substance: DOXORUBICIN
     Indication: Acute lymphocytic leukaemia
     Dosage: 42 MILLIGRAM
     Route: 042
     Dates: start: 20170530, end: 20170613
  22. PREDNISOLONE ACETATE [Suspect]
     Active Substance: PREDNISOLONE ACETATE
     Indication: Acute lymphocytic leukaemia
     Dosage: UNK, QD
     Route: 037
     Dates: start: 20170602, end: 20170602
  23. PREDNISOLONE [Suspect]
     Active Substance: PREDNISOLONE
     Indication: Acute lymphocytic leukaemia
     Dosage: UNK
     Route: 037
     Dates: start: 20170602, end: 20170602
  24. PREDNISOLONE [Suspect]
     Active Substance: PREDNISOLONE
     Dosage: 15 MILLIGRAM, QD
     Route: 037
     Dates: start: 20161202
  25. CYTARABINE [Suspect]
     Active Substance: CYTARABINE
     Indication: Acute lymphocytic leukaemia
     Dosage: 30 MILLIGRAM, QD, 30 MG,QDTOTAL DOSE: 1680
     Route: 037
     Dates: start: 20170602, end: 20170602
  26. CYTARABINE [Suspect]
     Active Substance: CYTARABINE
     Dosage: 30 MILLIGRAM
     Route: 037
     Dates: start: 20161202
  27. ETOPOSIDE [Suspect]
     Active Substance: ETOPOSIDE
     Indication: Acute lymphocytic leukaemia
     Dosage: 240 MILLIGRAM, QD, TOTAL DOSE: 720
     Route: 042
     Dates: start: 20170319, end: 20170321
  28. THIOGUANINE [Suspect]
     Active Substance: THIOGUANINE
     Indication: Acute lymphocytic leukaemia
     Dosage: UNK
     Route: 048
     Dates: start: 20170710, end: 20170714
  29. THIOGUANINE [Suspect]
     Active Substance: THIOGUANINE
     Dosage: UNK
     Route: 048
     Dates: start: 20170627, end: 20170707

REACTIONS (3)
  - Hypertriglyceridaemia [Recovered/Resolved]
  - Product use in unapproved indication [Unknown]
  - Off label use [Unknown]

NARRATIVE: CASE EVENT DATE: 20170620
